FAERS Safety Report 8778921 (Version 5)
Quarter: 2013Q2

REPORT INFORMATION
  Report Type: Report from Study
  Country: US (occurrence: US)
  Receive Date: 20120912
  Receipt Date: 20130521
  Transmission Date: 20140414
  Serious: Yes (Other)
  Sender: FDA-Public Use
  Company Number: PHEH2012US007376

PATIENT
  Age: 65 Year
  Sex: Male
  Weight: 88.89 kg

DRUGS (7)
  1. GLEEVEC [Suspect]
     Indication: CHRONIC MYELOID LEUKAEMIA
     Dosage: 400 MG, QD
     Route: 048
     Dates: start: 20080516
  2. GLEEVEC [Suspect]
     Dosage: 400 MG, UNK
     Route: 048
     Dates: start: 201203
  3. GLEEVEC [Suspect]
     Dosage: 400 MG, DAILY
     Route: 048
  4. OXYCODONE [Concomitant]
     Dosage: 03 MG, DAILY
     Route: 048
     Dates: start: 20120207
  5. PRILOSEC [Concomitant]
     Dosage: 40 MG, DAILY
     Route: 048
     Dates: start: 20120206
  6. HYDROCHLOROTHIAZIDE [Concomitant]
     Dosage: 50 MG, UNK
  7. CLARITIN [Concomitant]
     Dosage: 10 MG, UNK

REACTIONS (16)
  - Foot fracture [Unknown]
  - Nervousness [Unknown]
  - Drug intolerance [Unknown]
  - Road traffic accident [Unknown]
  - Red blood cell count decreased [Unknown]
  - Hypertension [Unknown]
  - Abdominal discomfort [Unknown]
  - Fatigue [Recovered/Resolved]
  - Nausea [Recovered/Resolved]
  - Abdominal pain upper [Unknown]
  - Vomiting [Unknown]
  - Myalgia [Unknown]
  - Weight increased [Unknown]
  - Arthralgia [Unknown]
  - Pruritus [Unknown]
  - Local swelling [Unknown]
